FAERS Safety Report 8213927-X (Version None)
Quarter: 2012Q1

REPORT INFORMATION
  Report Type: 
  Country: None (occurrence: None)
  Receive Date: 20120316
  Receipt Date: 20120308
  Transmission Date: 20120608
  Serious: Yes (Hospitalization)
  Sender: FDA-Public Use
  Company Number: US-BIOGENIDEC-2012BI008668

PATIENT
  Age: 40 Year
  Sex: Male

DRUGS (3)
  1. AVONEX [Suspect]
     Indication: MULTIPLE SCLEROSIS
     Route: 030
     Dates: start: 20070601, end: 20110601
  2. NEURONTIN [Concomitant]
     Indication: BONE PAIN
     Dates: start: 20120101, end: 20120201
  3. AVONEX [Suspect]
     Route: 030
     Dates: start: 20120219

REACTIONS (2)
  - VOMITING [None]
  - INFLUENZA LIKE ILLNESS [None]
